FAERS Safety Report 25761850 (Version 1)
Quarter: 2025Q3

REPORT INFORMATION
  Report Type: Spontaneous
  Country: US (occurrence: None)
  Receive Date: 20250904
  Receipt Date: 20250904
  Transmission Date: 20251020
  Serious: Yes (Other)
  Sender: FDA-CTU
  Company Number: None

PATIENT
  Age: 55 Year
  Sex: Male
  Weight: 116.8 kg

DRUGS (10)
  1. TRULICITY [Suspect]
     Active Substance: DULAGLUTIDE
     Indication: Type 2 diabetes mellitus
     Route: 058
     Dates: start: 20250725, end: 20250806
  2. TRULICITY [Suspect]
     Active Substance: DULAGLUTIDE
     Indication: Hyperglycaemia
  3. GABAPENTIN [Concomitant]
     Active Substance: GABAPENTIN
     Dates: start: 20181127
  4. LOSARTAN [Concomitant]
     Active Substance: LOSARTAN
     Dates: start: 20221118
  5. NOVOLOG [Concomitant]
     Active Substance: INSULIN ASPART
     Dates: start: 20250613
  6. ROSUVASTATIN [Concomitant]
     Active Substance: ROSUVASTATIN
     Dates: start: 20250606
  7. TRAMADOL [Concomitant]
     Active Substance: TRAMADOL
     Dates: start: 20201020
  8. LANTUS [Concomitant]
     Active Substance: INSULIN GLARGINE
     Dates: start: 20250310
  9. OZEMPIC [Concomitant]
     Active Substance: SEMAGLUTIDE
  10. MOUNJARO [Concomitant]
     Active Substance: TIRZEPATIDE

REACTIONS (6)
  - Central vision loss [None]
  - Hemianopia homonymous [None]
  - Diplopia [None]
  - Headache [None]
  - Cranial nerve paralysis [None]
  - Diabetes mellitus inadequate control [None]

NARRATIVE: CASE EVENT DATE: 20250806
